FAERS Safety Report 14881136 (Version 1)
Quarter: 2018Q2

REPORT INFORMATION
  Report Type: Spontaneous
  Country: US (occurrence: US)
  Receive Date: 20180425
  Receipt Date: 20180425
  Transmission Date: 20180711
  Serious: No
  Sender: FDA-Public Use
  Company Number: None

PATIENT
  Age: 20 Year
  Sex: Male
  Weight: 56.25 kg

DRUGS (1)
  1. MYLANTA MAXIMUM STRENGTH CLASSIC FLAVOR [Suspect]
     Active Substance: ALUMINUM HYDROXIDE\DIMETHICONE\MAGNESIUM HYDROXIDE
     Indication: DYSPEPSIA
     Dosage: ?          QUANTITY:20 ML;?
     Route: 048
     Dates: start: 20180420, end: 20180425

REACTIONS (4)
  - Myocardial infarction [None]
  - Abdominal pain upper [None]
  - Flatulence [None]
  - Dyspepsia [None]

NARRATIVE: CASE EVENT DATE: 20180425
